FAERS Safety Report 8215948-X (Version None)
Quarter: 2012Q1

REPORT INFORMATION
  Report Type: 
  Country: None (occurrence: None)
  Receive Date: 20120316
  Receipt Date: 20120313
  Transmission Date: 20120608
  Serious: Yes (Life-Threatening, Hospitalization)
  Sender: FDA-Public Use
  Company Number: JP-COVIDIEN/TYCO HEALTHCARE/MALLINCKRODT-T201200753

PATIENT
  Age: 34 Year
  Sex: Female
  Weight: 45 kg

DRUGS (4)
  1. TEPRENONE [Concomitant]
     Dosage: 50 MG, TID
     Route: 048
  2. CLOTIAZEPAM [Concomitant]
     Dosage: 5 MG, QD
     Route: 048
  3. TRAMADOL HYDROCHLORIDE [Concomitant]
     Dosage: 25 MG, TID
     Route: 048
  4. OPTIRAY 160 [Suspect]
     Indication: COMPUTERISED TOMOGRAM
     Dosage: 100 ML, SINGLE
     Route: 042
     Dates: start: 20120227, end: 20120227

REACTIONS (1)
  - ANAPHYLACTIC SHOCK [None]
